FAERS Safety Report 19602162 (Version 1)
Quarter: 2021Q3

REPORT INFORMATION
  Report Type: Report from Study
  Country: US (occurrence: US)
  Receive Date: 20210722
  Receipt Date: 20210722
  Transmission Date: 20211014
  Serious: Yes (Other)
  Sender: FDA-Public Use
  Company Number: US-ALS-000335

PATIENT
  Age: 47 Year
  Sex: Male

DRUGS (5)
  1. METFORMIN [Suspect]
     Active Substance: METFORMIN HYDROCHLORIDE
     Indication: TYPE 2 DIABETES MELLITUS
     Route: 065
  2. SITAGLIPTIN [Suspect]
     Active Substance: SITAGLIPTIN
     Indication: TYPE 2 DIABETES MELLITUS
     Route: 065
  3. LISINOPRIL. [Suspect]
     Active Substance: LISINOPRIL
     Indication: HYPERTENSION
     Route: 065
  4. LOVASTATIN. [Suspect]
     Active Substance: LOVASTATIN
     Indication: DYSLIPIDAEMIA
     Route: 065
  5. GLIMEPIRIDE. [Suspect]
     Active Substance: GLIMEPIRIDE
     Indication: TYPE 2 DIABETES MELLITUS
     Route: 065

REACTIONS (10)
  - Hyperphagia [Unknown]
  - Haemosiderin stain [Unknown]
  - Polyuria [Unknown]
  - Polydipsia [Unknown]
  - Visual impairment [Unknown]
  - Disease progression [Unknown]
  - Drug ineffective [Unknown]
  - Diabetic neuropathy [Unknown]
  - Mood altered [Unknown]
  - Fatigue [Unknown]
